FAERS Safety Report 7643186-8 (Version None)
Quarter: 2011Q3

REPORT INFORMATION
  Report Type: 
  Country: None (occurrence: None)
  Receive Date: 20110729
  Receipt Date: 20110720
  Transmission Date: 20111222
  Serious: Yes (Hospitalization)
  Sender: FDA-Public Use
  Company Number: US-BIOGENIDEC-2011BI026798

PATIENT
  Age: 64 Year
  Sex: Female

DRUGS (3)
  1. AVONEX [Suspect]
     Indication: MULTIPLE SCLEROSIS
     Route: 030
  2. AVONEX [Suspect]
     Route: 030
     Dates: start: 20110515
  3. AVONEX [Suspect]
     Route: 030
     Dates: start: 19990901, end: 20101211

REACTIONS (4)
  - PAIN IN EXTREMITY [None]
  - NEURALGIA [None]
  - BACK PAIN [None]
  - MULTIPLE SCLEROSIS [None]
